FAERS Safety Report 8583600-7 (Version None)
Quarter: 2012Q3

REPORT INFORMATION
  Report Type: 
  Country: None (occurrence: None)
  Receive Date: 20120809
  Receipt Date: 20120731
  Transmission Date: 20120928
  Serious: Yes (Hospitalization)
  Sender: FDA-Public Use
  Company Number: CA-BRISTOL-MYERS SQUIBB COMPANY-16684573

PATIENT
  Age: 42 Year
  Sex: Female

DRUGS (15)
  1. HYDROXYCHLOROQUINE SULFATE [Concomitant]
  2. VITAMIN D [Concomitant]
  3. TYLENOL W/ CODEINE NO. 3 [Concomitant]
  4. ATROVENT [Concomitant]
  5. OMEPRAZOLE [Concomitant]
  6. LORAZEPAM [Concomitant]
  7. ORENCIA [Suspect]
     Indication: RHEUMATOID ARTHRITIS
     Dosage: MAY11-JUN11,1ST ON 08MAY12,INTD, 2ND INF ON 05JUN12
     Route: 042
     Dates: start: 20110501
  8. NORTRIPTYLINE HCL [Concomitant]
  9. ENALAPRIL MALEATE [Concomitant]
  10. CELLCEPT [Concomitant]
  11. HYDROMORPHONE HYDROCHLORIDE [Concomitant]
     Dosage: 6MG
  12. VENTOLIN [Concomitant]
  13. ADALAT [Concomitant]
  14. PREDNISONE TAB [Concomitant]
  15. BENADRYL [Concomitant]
     Dosage: AFTER ORENCIA

REACTIONS (1)
  - SYSTEMIC LUPUS ERYTHEMATOSUS [None]
